FAERS Safety Report 5806990-4 (Version None)
Quarter: 2008Q3

REPORT INFORMATION
  Report Type: 
  Country: None (occurrence: None)
  Receive Date: 20080711
  Receipt Date: 20080703
  Transmission Date: 20090109
  Serious: Yes (Other)
  Sender: FDA-Public Use
  Company Number: GB-ABBOTT-08P-167-0461211-00

PATIENT
  Age: 14 Year
  Sex: Male

DRUGS (2)
  1. ERYTHROMYCIN [Suspect]
     Indication: ACNE
     Route: 048
     Dates: start: 20070801, end: 20071011
  2. PIZOTIFEN [Suspect]
     Indication: MIGRAINE
     Route: 048
     Dates: end: 20071011

REACTIONS (6)
  - DIZZINESS [None]
  - ELECTROCARDIOGRAM ABNORMAL [None]
  - HYPERHIDROSIS [None]
  - LOSS OF CONSCIOUSNESS [None]
  - NAUSEA [None]
  - PALPITATIONS [None]
